FAERS Safety Report 5213132-5 (Version None)
Quarter: 2007Q1

REPORT INFORMATION
  Report Type: 
  Country: None (occurrence: None)
  Receive Date: 20070118
  Receipt Date: 20070118
  Transmission Date: 20070707
  Serious: No
  Sender: FDA-Public Use
  Company Number: None

PATIENT
  Age: 32 Year
  Sex: Female
  Weight: 76.9 kg

DRUGS (1)
  1. PEG-INTRON 80 MICROGRAMS, SCHERING PLOUGH [Suspect]
     Indication: HAEMORRHAGE
     Dosage: 80 MCGS  ONCE WEEKLY  SUBCUTANEU
     Route: 058
     Dates: start: 20070109

REACTIONS (2)
  - GAZE PALSY [None]
  - MUSCLE TWITCHING [None]
